FAERS Safety Report 5956073-8 (Version None)
Quarter: 2008Q4

REPORT INFORMATION
  Report Type: 
  Country: None (occurrence: None)
  Receive Date: 20081118
  Receipt Date: 20081111
  Transmission Date: 20090506
  Serious: Yes (Other)
  Sender: FDA-Public Use
  Company Number: US-JNJFOC-20080805803

PATIENT
  Sex: Female
  Weight: 86.18 kg

DRUGS (12)
  1. DURAGESIC-100 [Suspect]
     Indication: BACK PAIN
     Route: 062
  2. DURAGESIC-100 [Suspect]
     Indication: SPINAL OSTEOARTHRITIS
     Route: 062
  3. PREDNISONE TAB [Suspect]
     Indication: COLITIS ULCERATIVE
     Route: 048
  4. ZYRTEC [Concomitant]
     Indication: MULTIPLE ALLERGIES
     Route: 048
  5. MAXZIDE [Concomitant]
     Indication: MENIERE'S DISEASE
     Route: 048
  6. SIMVASTATIN [Concomitant]
     Indication: BLOOD TRIGLYCERIDES
     Route: 048
  7. PAXIL [Concomitant]
     Indication: ANXIETY
     Route: 048
  8. PRILOSEC [Concomitant]
     Indication: GASTROOESOPHAGEAL REFLUX DISEASE
     Route: 048
  9. ATIVAN [Concomitant]
     Indication: ANXIETY
     Route: 048
  10. LISINOPRIL [Concomitant]
     Indication: HYPERTENSION
     Route: 048
  11. LEVOXYL [Concomitant]
     Indication: HYPERTHYROIDISM
     Route: 048
  12. LOPID [Concomitant]
     Indication: BLOOD CHOLESTEROL INCREASED
     Route: 048

REACTIONS (5)
  - ABDOMINAL ABSCESS [None]
  - ANAEMIA [None]
  - COLITIS ULCERATIVE [None]
  - INAPPROPRIATE SCHEDULE OF DRUG ADMINISTRATION [None]
  - PRODUCT QUALITY ISSUE [None]
